FAERS Safety Report 4847005-4 (Version None)
Quarter: 2005Q4

REPORT INFORMATION
  Report Type: 
  Country: None (occurrence: None)
  Receive Date: 20051205
  Receipt Date: 20051122
  Transmission Date: 20060501
  Serious: Yes (Other)
  Sender: FDA-Public Use
  Company Number: 2005159463

PATIENT
  Age: 56 Year
  Sex: Male
  Weight: 117.9352 kg

DRUGS (8)
  1. VIAGRA [Suspect]
     Indication: ERECTILE DYSFUNCTION
     Dosage: 100 MG, AS NECESSARY
     Dates: end: 20010101
  2. METOPROLOL (METOPROLOL) [Suspect]
     Indication: ILL-DEFINED DISORDER
  3. ISOSORBIDE (ISOSORBIDE) [Suspect]
     Indication: ILL-DEFINED DISORDER
  4. ANTIHYPERTENSIVES (ANTIHYPERTENSIVES) [Suspect]
     Indication: HYPERTENSION
  5. PRANDIN [Suspect]
     Indication: DIABETES MELLITUS
  6. ASPIRIN [Concomitant]
  7. ACETAMINOPHEN [Concomitant]
  8. ALL OTHER THERAPEUTIC PRODUCTS [Suspect]
     Indication: MYOCARDIAL INFARCTION
     Dates: start: 20010101

REACTIONS (5)
  - BLOOD PRESSURE INCREASED [None]
  - CATARACT [None]
  - DIABETES MELLITUS [None]
  - LOW DENSITY LIPOPROTEIN INCREASED [None]
  - MYOCARDIAL INFARCTION [None]
